FAERS Safety Report 13941716 (Version 1)
Quarter: 2017Q3

REPORT INFORMATION
  Report Type: Spontaneous
  Country: US (occurrence: US)
  Receive Date: 20170906
  Receipt Date: 20170906
  Transmission Date: 20171127
  Serious: No
  Sender: FDA-Public Use
  Company Number: None

PATIENT
  Age: 60 Year
  Sex: Male

DRUGS (4)
  1. HARVONI [Suspect]
     Active Substance: LEDIPASVIR\SOFOSBUVIR
     Indication: HEPATITIS C
     Route: 048
     Dates: start: 20170824, end: 20170906
  2. LASIX [Concomitant]
     Active Substance: FUROSEMIDE
  3. POTASSIUM CHLORIDE. [Concomitant]
     Active Substance: POTASSIUM CHLORIDE
  4. ALDACTONE [Concomitant]
     Active Substance: SPIRONOLACTONE

REACTIONS (5)
  - Fatigue [None]
  - Influenza like illness [None]
  - Headache [None]
  - Muscle spasms [None]
  - Pain [None]

NARRATIVE: CASE EVENT DATE: 20170906
